FAERS Safety Report 5696504-4 (Version None)
Quarter: 2008Q2

REPORT INFORMATION
  Report Type: 
  Country: None (occurrence: None)
  Receive Date: 20080408
  Receipt Date: 20080403
  Transmission Date: 20081010
  Serious: Yes (Hospitalization)
  Sender: FDA-Public Use
  Company Number: JP-BRISTOL-MYERS SQUIBB COMPANY-13901871

PATIENT
  Age: 70 Year
  Sex: Male

DRUGS (5)
  1. PARAPLATIN [Suspect]
     Indication: LUNG NEOPLASM MALIGNANT
     Dosage: CYC 1:10-JUL-2007; CYC 2:31-JUL-2007
     Route: 041
     Dates: start: 20070710, end: 20070821
  2. TAXOL [Suspect]
     Indication: LUNG NEOPLASM MALIGNANT
     Dosage: CYC 1:10JUL2007; CYC2:31JUL2007
     Route: 041
     Dates: start: 20070710, end: 20070821
  3. LOXONIN [Concomitant]
     Route: 048
     Dates: start: 20070622
  4. SELBEX [Concomitant]
     Route: 048
     Dates: start: 20070807
  5. GASTER D [Concomitant]
     Route: 048
     Dates: start: 20070807

REACTIONS (1)
  - LUNG DISORDER [None]
